FAERS Safety Report 23611338 (Version 2)
Quarter: 2024Q1

REPORT INFORMATION
  Report Type: Report from Study
  Country: US (occurrence: US)
  Receive Date: 20240308
  Receipt Date: 20240314
  Transmission Date: 20240410
  Serious: Yes (Other)
  Sender: FDA-Public Use
  Company Number: US-TAKEDA-2024TUS020870

PATIENT
  Age: 27 Year
  Sex: Male

DRUGS (2)
  1. RECOMBINATE [Suspect]
     Active Substance: ANTIHEMOPHILIC FACTOR, HUMAN RECOMBINANT
     Indication: Product used for unknown indication
     Dosage: 3600 INTERNATIONAL UNIT
     Route: 065
  2. RECOMBINATE [Suspect]
     Active Substance: ANTIHEMOPHILIC FACTOR, HUMAN RECOMBINANT
     Dosage: 3400 INTERNATIONAL UNIT, 3/WEEK
     Route: 050

REACTIONS (3)
  - Haemarthrosis [Recovered/Resolved]
  - Contusion [Unknown]
  - Spontaneous haemorrhage [Unknown]

NARRATIVE: CASE EVENT DATE: 20240226
